FAERS Safety Report 4662973-1 (Version None)
Quarter: 2005Q2

REPORT INFORMATION
  Report Type: 
  Country: None (occurrence: None)
  Receive Date: 20050516
  Receipt Date: 20050510
  Transmission Date: 20051028
  Serious: Yes (Hospitalization)
  Sender: FDA-Public Use
  Company Number: DE-MERCK-0505DEU00077

PATIENT
  Age: 84 Year
  Sex: Male

DRUGS (6)
  1. THEOPHYLLINE [Concomitant]
     Indication: CHRONIC OBSTRUCTIVE PULMONARY DISEASE
     Route: 048
  2. VERAPAMIL HYDROCHLORIDE [Concomitant]
     Indication: TACHYARRHYTHMIA
     Route: 048
  3. ALLOPURINOL [Concomitant]
     Route: 065
  4. COZAAR [Suspect]
     Indication: HYPERTENSION
     Route: 048
     Dates: end: 20050501
  5. TIOTROPIUM BROMIDE [Concomitant]
     Indication: CHRONIC OBSTRUCTIVE PULMONARY DISEASE
     Route: 055
  6. SALMETEROL XINAFOATE [Concomitant]
     Indication: CHRONIC OBSTRUCTIVE PULMONARY DISEASE
     Route: 065

REACTIONS (3)
  - BLOOD CREATINE PHOSPHOKINASE INCREASED [None]
  - BLOOD CREATININE INCREASED [None]
  - CHRONIC OBSTRUCTIVE PULMONARY DISEASE [None]
